FAERS Safety Report 14569084 (Version 1)
Quarter: 2018Q1

REPORT INFORMATION
  Report Type: Spontaneous
  Country: US (occurrence: US)
  Receive Date: 20180223
  Receipt Date: 20180223
  Transmission Date: 20180509
  Serious: Yes (Hospitalization)
  Sender: FDA-Public Use
  Company Number: US-LANNETT COMPANY, INC.-US-2018LAN000482

PATIENT
  Age: 47 Year
  Sex: Female

DRUGS (2)
  1. BACLOFEN (20MG) [Suspect]
     Active Substance: BACLOFEN
     Dosage: HALF HER HOME DOSE
     Route: 065
  2. BACLOFEN (20MG) [Suspect]
     Active Substance: BACLOFEN
     Indication: MUSCLE SPASMS
     Dosage: 10 MG, TID
     Route: 065

REACTIONS (5)
  - Drug withdrawal syndrome [Recovered/Resolved]
  - Overdose [Recovered/Resolved]
  - Delirium [Recovered/Resolved]
  - Unresponsive to stimuli [Recovered/Resolved]
  - Agitation [Recovered/Resolved]
